FAERS Safety Report 10985814 (Version 1)
Quarter: 2015Q2

REPORT INFORMATION
  Report Type: Spontaneous
  Country: US (occurrence: US)
  Receive Date: 20150404
  Receipt Date: 20150404
  Transmission Date: 20150821
  Serious: No
  Sender: FDA-Public Use
  Company Number: US-SA-2014SA086151

PATIENT
  Sex: Female

DRUGS (1)
  1. ALLEGRA-D [Suspect]
     Active Substance: FEXOFENADINE\PSEUDOEPHEDRINE
     Indication: MULTIPLE ALLERGIES
     Route: 048
     Dates: end: 20140625

REACTIONS (5)
  - Visual impairment [Unknown]
  - Throat tightness [Unknown]
  - Dysphagia [Unknown]
  - Drug ineffective [Unknown]
  - Drug administration error [Unknown]
